FAERS Safety Report 20372667 (Version 1)
Quarter: 2022Q1

REPORT INFORMATION
  Report Type: Report from Study
  Country: BR (occurrence: BR)
  Receive Date: 20220125
  Receipt Date: 20220125
  Transmission Date: 20220423
  Serious: Yes (Hospitalization, Other)
  Sender: FDA-Public Use
  Company Number: BR-ABBVIE-21K-020-4169309-00

PATIENT
  Sex: Female

DRUGS (1)
  1. RINVOQ [Suspect]
     Active Substance: UPADACITINIB
     Indication: Rheumatoid arthritis
     Route: 048
     Dates: start: 20211026

REACTIONS (6)
  - Spinal operation [Unknown]
  - COVID-19 [Unknown]
  - Back pain [Unknown]
  - Mobility decreased [Unknown]
  - Dysstasia [Unknown]
  - Mental disorder [Unknown]

NARRATIVE: CASE EVENT DATE: 20210101
